FAERS Safety Report 8802761 (Version 5)
Quarter: 2013Q3

REPORT INFORMATION
  Report Type: Spontaneous
  Country: US (occurrence: US)
  Receive Date: 20120921
  Receipt Date: 20130710
  Transmission Date: 20140515
  Serious: Yes (Hospitalization, Other)
  Sender: FDA-Public Use
  Company Number: US-009507513-1209USA004663

PATIENT
  Sex: Female
  Weight: 83.9 kg

DRUGS (10)
  1. FOSAMAX [Suspect]
     Indication: OSTEOPOROSIS PROPHYLAXIS
     Dosage: 70 MG, QW
     Route: 048
     Dates: start: 20031028, end: 20080416
  2. FOSAMAX [Suspect]
     Dosage: 70 MG, QW
     Route: 048
     Dates: start: 20101011, end: 20101208
  3. FOSAMAX [Suspect]
     Dosage: 10 MG, QD
     Route: 048
  4. ALENDRONATE SODIUM [Suspect]
     Indication: OSTEOPOROSIS PROPHYLAXIS
     Dosage: 70 MG, QW
     Route: 048
     Dates: start: 20080418, end: 20101011
  5. VITAMINS (UNSPECIFIED) [Concomitant]
     Dosage: UNK, QD
     Dates: start: 2000
  6. CALCIUM (UNSPECIFIED) [Concomitant]
     Dosage: 600 MG, BID
     Dates: start: 2000
  7. OMEPRAZOLE [Concomitant]
     Dosage: UNK
     Dates: start: 2005
  8. HORMONES (UNSPECIFIED) [Concomitant]
     Dosage: UNK
     Dates: start: 1996, end: 201105
  9. PREMARIN [Concomitant]
     Dosage: UNK
     Dates: start: 1996
  10. HYDROCHLOROTHIAZIDE [Concomitant]
     Indication: HYPERTENSION
     Dosage: UNK
     Dates: start: 2002

REACTIONS (26)
  - Intramedullary rod insertion [Unknown]
  - Medical device implantation [Unknown]
  - Femur fracture [Unknown]
  - Femur fracture [Unknown]
  - Peripheral embolism [Unknown]
  - Wound [Unknown]
  - Balance disorder [Unknown]
  - Endodontic procedure [Unknown]
  - Blood cholesterol increased [Unknown]
  - Bunion operation [Unknown]
  - Nasal congestion [Unknown]
  - Bunion operation [Unknown]
  - Arthritis [Unknown]
  - Foot operation [Unknown]
  - Mitral valve prolapse [Unknown]
  - Deep vein thrombosis [Unknown]
  - Osteoarthritis [Not Recovered/Not Resolved]
  - Hyperlipidaemia [Unknown]
  - Fluid retention [Unknown]
  - Breast cyst [Unknown]
  - Hot flush [Unknown]
  - Vulvovaginal dryness [Unknown]
  - Pain in extremity [Unknown]
  - Pain in extremity [Unknown]
  - Oedema peripheral [Unknown]
  - Arthralgia [Unknown]
